FAERS Safety Report 6509872-8 (Version None)
Quarter: 2009Q4

REPORT INFORMATION
  Report Type: 
  Country: None (occurrence: None)
  Receive Date: 20091222
  Receipt Date: 20091215
  Transmission Date: 20100525
  Serious: Yes (Life-Threatening, Hospitalization)
  Sender: FDA-Public Use
  Company Number: CA-JNJFOC-20091200674

PATIENT
  Sex: Female
  Weight: 115.67 kg

DRUGS (2)
  1. RISPERDAL CONSTA [Suspect]
     Indication: SCHIZOPHRENIA
     Route: 030
     Dates: start: 20081201, end: 20091118
  2. RISPERDAL CONSTA [Suspect]
     Route: 030
     Dates: start: 20081201, end: 20091118

REACTIONS (4)
  - DIABETIC COMA [None]
  - KETOACIDOSIS [None]
  - OVERDOSE [None]
  - URINARY INCONTINENCE [None]
